FAERS Safety Report 4879469-4 (Version None)
Quarter: 2005Q4

REPORT INFORMATION
  Report Type: 
  Country: None (occurrence: None)
  Receive Date: 20051209
  Receipt Date: 20050930
  Transmission Date: 20060501
  Serious: Yes (Death, Other)
  Sender: FDA-Public Use
  Company Number: USA-2005-0021381

PATIENT
  Age: 30 Year
  Sex: Male
  Weight: 91.6266 kg

DRUGS (2)
  1. OXYCODONE HCL [Suspect]
     Route: 065
  2. ETHANOL (ETHANOL) [Suspect]
     Route: 065

REACTIONS (3)
  - DYSARTHRIA [None]
  - MULTIPLE DRUG OVERDOSE ACCIDENTAL [None]
  - POLYSUBSTANCE ABUSE [None]
